FAERS Safety Report 10383036 (Version 2)
Quarter: 2020Q1

REPORT INFORMATION
  Report Type: Report from Study
  Country: US (occurrence: US)
  Receive Date: 20140813
  Receipt Date: 20200109
  Transmission Date: 20200409
  Serious: Yes (Other)
  Sender: FDA-Public Use
  Company Number: US-SA-2014SA092609

PATIENT
  Age: 47 Year
  Sex: Male
  Weight: 79.82 kg

DRUGS (4)
  1. AGALSIDASE BETA [Suspect]
     Active Substance: AGALSIDASE BETA
     Dosage: DOSE, FREQUENCY: 75.00, Q2
     Route: 041
     Dates: start: 20160218
  2. AGALSIDASE BETA [Suspect]
     Active Substance: AGALSIDASE BETA
     Dosage: 70 MG,QOW
     Route: 041
     Dates: start: 201406, end: 201510
  3. AGALSIDASE BETA [Suspect]
     Active Substance: AGALSIDASE BETA
     Indication: FABRY^S DISEASE
     Dosage: 70 MG,QOW
     Route: 041
     Dates: start: 20080731, end: 2014
  4. AGALSIDASE BETA [Suspect]
     Active Substance: AGALSIDASE BETA
     Dosage: 80 MG, QOW
     Route: 041
     Dates: start: 20170428

REACTIONS (19)
  - Restless legs syndrome [Unknown]
  - Musculoskeletal discomfort [Recovering/Resolving]
  - Carbon monoxide poisoning [Unknown]
  - Cardiac murmur [Unknown]
  - Catheter placement [Unknown]
  - Keloid scar [Not Recovered/Not Resolved]
  - Sleep apnoea syndrome [Unknown]
  - Headache [Unknown]
  - Dizziness [Unknown]
  - Deafness [Unknown]
  - Hypersensitivity [Unknown]
  - Product dose omission [Unknown]
  - Amnesia [Unknown]
  - Bronchitis [Unknown]
  - Mobility decreased [Unknown]
  - Pain [Unknown]
  - Back pain [Unknown]
  - Peripheral swelling [Recovered/Resolved]
  - Temperature regulation disorder [Unknown]

NARRATIVE: CASE EVENT DATE: 2015
